FAERS Safety Report 4817455-0 (Version None)
Quarter: 2005Q4

REPORT INFORMATION
  Report Type: 
  Country: None (occurrence: None)
  Receive Date: 20051101
  Receipt Date: 20050707
  Transmission Date: 20060501
  Serious: Yes (Hospitalization)
  Sender: FDA-Public Use
  Company Number: US-MERCK-0507USA01229

PATIENT
  Age: 78 Year
  Sex: Male
  Weight: 93 kg

DRUGS (11)
  1. VIOXX [Suspect]
     Indication: ARTHRALGIA
     Route: 048
     Dates: start: 20010401
  2. VIOXX [Suspect]
     Route: 048
     Dates: end: 20010419
  3. VIOXX [Suspect]
     Route: 048
     Dates: start: 20010420, end: 20040901
  4. VIOXX [Suspect]
     Route: 048
  5. COUMADIN [Concomitant]
     Indication: ANTICOAGULANT THERAPY
     Route: 065
     Dates: start: 19900101, end: 19950101
  6. COUMADIN [Concomitant]
     Route: 065
     Dates: start: 19950101
  7. NORVASC [Concomitant]
     Route: 065
     Dates: start: 20010101, end: 20040101
  8. FUROSEMIDE [Concomitant]
     Indication: POLYURIA
     Route: 065
     Dates: start: 20000101
  9. LIPITOR [Concomitant]
     Route: 065
     Dates: start: 20000101, end: 20040101
  10. TYLENOL (CAPLET) [Concomitant]
     Indication: ARTHRALGIA
     Route: 065
     Dates: start: 19990101
  11. MEGESTROL ACETATE [Concomitant]
     Indication: HOT FLUSH
     Route: 065

REACTIONS (18)
  - CARDIAC DISORDER [None]
  - CHEST PAIN [None]
  - CYST [None]
  - DEEP VEIN THROMBOSIS [None]
  - DRUG LEVEL BELOW THERAPEUTIC [None]
  - DYSPNOEA [None]
  - DYSPNOEA EXERTIONAL [None]
  - ELECTROCARDIOGRAM ST-T CHANGE [None]
  - OEDEMA PERIPHERAL [None]
  - ORTHOSTATIC HYPOTENSION [None]
  - PAIN IN EXTREMITY [None]
  - PLEURITIC PAIN [None]
  - RASH [None]
  - RENAL DISORDER [None]
  - SEPSIS [None]
  - SKIN ULCER [None]
  - SYNCOPE [None]
  - THROMBOSIS [None]
